FAERS Safety Report 5125116-6 (Version None)
Quarter: 2006Q4

REPORT INFORMATION
  Report Type: 
  Country: None (occurrence: None)
  Receive Date: 20061010
  Receipt Date: 20061010
  Transmission Date: 20070319
  Serious: Yes (Other)
  Sender: FDA-Public Use
  Company Number: None

PATIENT
  Age: 42 Year
  Sex: Female
  Weight: 62.5964 kg

DRUGS (1)
  1. MEVACOR [Suspect]
     Indication: BLOOD CHOLESTEROL INCREASED
     Dosage: 40 MG ONCE DAILY PO
     Route: 048
     Dates: start: 20060401, end: 20060414

REACTIONS (4)
  - DEAFNESS [None]
  - EAR DISCOMFORT [None]
  - HEADACHE [None]
  - TINNITUS [None]
